FAERS Safety Report 14688792 (Version 1)
Quarter: 2018Q1

REPORT INFORMATION
  Report Type: Spontaneous
  Country: US (occurrence: US)
  Receive Date: 20180326
  Receipt Date: 20180326
  Transmission Date: 20180509
  Serious: Yes (Hospitalization)
  Sender: FDA-Public Use
  Company Number: None

PATIENT
  Age: 64 Year
  Sex: Female

DRUGS (1)
  1. NUCALA [Suspect]
     Active Substance: MEPOLIZUMAB
     Indication: ASTHMA
     Dosage: FREQUENCY - EVERY 4 WEEKS
     Route: 058
     Dates: start: 20170712

REACTIONS (2)
  - Chronic obstructive pulmonary disease [None]
  - Asthma [None]

NARRATIVE: CASE EVENT DATE: 20180323
